FAERS Safety Report 23540901 (Version 1)
Quarter: 2024Q1

REPORT INFORMATION
  Report Type: Spontaneous
  Country: FI (occurrence: FI)
  Receive Date: 20240219
  Receipt Date: 20240219
  Transmission Date: 20240409
  Serious: Yes (Life-Threatening)
  Sender: FDA-Public Use
  Company Number: FI-AMERICAN REGENT INC-2024000536

PATIENT
  Age: 41 Year
  Sex: Female

DRUGS (1)
  1. FERINJECT [Suspect]
     Active Substance: FERRIC CARBOXYMALTOSE
     Indication: Iron deficiency anaemia
     Dosage: 1000 MILLIGRAM (FERINJECT 1000 MG/20 ML, DILUTED IN 100 ML OF 0.9 PERCENT SODIUM CHLORIDE (NACL))
     Dates: start: 20240201, end: 20240201

REACTIONS (3)
  - Dysphonia [Unknown]
  - Cough [Unknown]
  - Paraesthesia [Unknown]

NARRATIVE: CASE EVENT DATE: 20240201
